FAERS Safety Report 4322865-4 (Version None)
Quarter: 2004Q1

REPORT INFORMATION
  Report Type: 
  Country: None (occurrence: None)
  Receive Date: 20040322
  Receipt Date: 20040308
  Transmission Date: 20041129
  Serious: Yes (Death)
  Sender: FDA-Public Use
  Company Number: 2004-113604-NL

PATIENT
  Age: 77 Year
  Sex: Female

DRUGS (2)
  1. DANAPAROID SODIUM [Suspect]
     Indication: HEPARIN-INDUCED THROMBOCYTOPENIA
     Dosage: DF
     Dates: start: 20040120, end: 20040123
  2. HEPARIN [Suspect]
     Indication: THROMBOSIS PROPHYLAXIS
     Dosage: DF
     Dates: start: 20040112, end: 20040120

REACTIONS (7)
  - CARDIAC FAILURE [None]
  - DISEASE RECURRENCE [None]
  - HEPARIN-INDUCED THROMBOCYTOPENIA [None]
  - MAJOR DEPRESSION [None]
  - PNEUMONIA [None]
  - PULMONARY EMBOLISM [None]
  - TRANSIENT ISCHAEMIC ATTACK [None]
